FAERS Safety Report 4901987-0 (Version None)
Quarter: 2006Q1

REPORT INFORMATION
  Report Type: 
  Country: None (occurrence: None)
  Receive Date: 20060206
  Receipt Date: 20060109
  Transmission Date: 20060701
  Serious: Yes (Death)
  Sender: FDA-Public Use
  Company Number: GB-BRISTOL-MYERS SQUIBB COMPANY-13241070

PATIENT
  Age: 68 Year
  Sex: Female

DRUGS (10)
  1. TAXOL [Suspect]
     Indication: BREAST CANCER
     Route: 042
     Dates: start: 20051129, end: 20051129
  2. ARIMIDEX [Concomitant]
     Dates: start: 20040901
  3. MST [Concomitant]
  4. CALCIUM CITRATE [Concomitant]
  5. ALPHACALCIDOL [Concomitant]
  6. SODIUM CLODRONATE [Concomitant]
  7. LANSOPRAZOLE [Concomitant]
  8. PARACETAMOL [Concomitant]
  9. SLOW-K [Concomitant]
  10. AMLODIPINE [Concomitant]

REACTIONS (1)
  - PULMONARY EMBOLISM [None]
